FAERS Safety Report 12014998 (Version 2)
Quarter: 2016Q1

REPORT INFORMATION
  Report Type: Spontaneous
  Country: US (occurrence: US)
  Receive Date: 20160205
  Receipt Date: 20160211
  Transmission Date: 20160526
  Serious: Yes (Death, Other)
  Sender: FDA-Public Use
  Company Number: US-BAXALTA-2016BLT000437

PATIENT
  Age: 85 Year
  Sex: Male
  Weight: 55 kg

DRUGS (4)
  1. FEIBA NF [Suspect]
     Active Substance: ANTI-INHIBITOR COAGULANT COMPLEX
     Indication: ACQUIRED HAEMOPHILIA
     Dosage: 6000 U, EVERY 12 HOURS
     Route: 042
     Dates: start: 20151207, end: 20151213
  2. OBIZUR [Suspect]
     Active Substance: ANTIHEMOPHILIC FACTOR PORCINE, B-DOMAIN TRUNCATED RECOMBINANT
     Indication: ACQUIRED HAEMOPHILIA
     Dosage: 11000 U, 200U/KG, EVERY 12 HOURS
     Route: 042
     Dates: start: 20151213, end: 20151220
  3. NOVOSEVEN [Suspect]
     Active Substance: COAGULATION FACTOR VIIA RECOMBINANT HUMAN
     Dosage: ^5000 UNITS^, EVERY 12 HOURS
     Route: 042
     Dates: start: 20151203, end: 20151220
  4. NOVOSEVEN [Suspect]
     Active Substance: COAGULATION FACTOR VIIA RECOMBINANT HUMAN
     Indication: ACQUIRED HAEMOPHILIA
     Dosage: ^5000 UNITS^, EVERY 2 HOURS
     Route: 042
     Dates: start: 20151203, end: 20151220

REACTIONS (2)
  - Death [Fatal]
  - Embolism [Unknown]

NARRATIVE: CASE EVENT DATE: 20151218
